FAERS Safety Report 15283476 (Version 1)
Quarter: 2018Q3

REPORT INFORMATION
  Report Type: Spontaneous
  Country: US (occurrence: US)
  Receive Date: 20180731
  Receipt Date: 20180731
  Transmission Date: 20181010
  Serious: Yes (Hospitalization)
  Sender: FDA-Public Use
  Company Number: None

PATIENT
  Age: 51 Year
  Sex: Female
  Weight: 79 kg

DRUGS (1)
  1. GEMCITABINE HYDROCHLORIDE. [Suspect]
     Active Substance: GEMCITABINE HYDROCHLORIDE
     Dates: end: 20180717

REACTIONS (6)
  - Cough [None]
  - Pneumonia [None]
  - Abdominal pain [None]
  - Ascites [None]
  - Pyrexia [None]
  - Peritonitis bacterial [None]

NARRATIVE: CASE EVENT DATE: 20180721
